FAERS Safety Report 5309665-3 (Version None)
Quarter: 2007Q2

REPORT INFORMATION
  Report Type: 
  Country: None (occurrence: None)
  Receive Date: 20070427
  Receipt Date: 20060920
  Transmission Date: 20071010
  Serious: No
  Sender: FDA-Public Use
  Company Number: US-GLAXOSMITHKLINE-A0620844A

PATIENT
  Sex: Male

DRUGS (1)
  1. DEXEDRINE [Suspect]
     Indication: ATTENTION DEFICIT/HYPERACTIVITY DISORDER
     Dosage: 10MG VARIABLE DOSE
     Route: 048
     Dates: start: 20040101, end: 20040621

REACTIONS (2)
  - ABDOMINAL PAIN UPPER [None]
  - ILL-DEFINED DISORDER [None]
